FAERS Safety Report 17673391 (Version 2)
Quarter: 2020Q2

REPORT INFORMATION
  Report Type: Spontaneous
  Country: RO (occurrence: RO)
  Receive Date: 20200415
  Receipt Date: 20200618
  Transmission Date: 20200713
  Serious: Yes (Other)
  Sender: FDA-Public Use
  Company Number: NVSC2020RO093200

PATIENT
  Age: 60 Year
  Sex: Female

DRUGS (6)
  1. PAZOPANIB [Suspect]
     Active Substance: PAZOPANIB
     Indication: PAPILLARY RENAL CELL CARCINOMA
     Dosage: 800 MG, QD
     Route: 065
     Dates: start: 201802
  2. PACLITAXEL. [Suspect]
     Active Substance: PACLITAXEL
     Indication: PAPILLARY RENAL CELL CARCINOMA
     Dosage: 125 MG/M2, Q3W
     Route: 065
  3. PACLITAXEL. [Suspect]
     Active Substance: PACLITAXEL
     Indication: IMMUNOSUPPRESSANT DRUG THERAPY
  4. PACLITAXEL. [Suspect]
     Active Substance: PACLITAXEL
     Indication: OVARIAN CANCER
  5. PAZOPANIB [Suspect]
     Active Substance: PAZOPANIB
     Indication: OVARIAN CANCER
  6. PAZOPANIB [Suspect]
     Active Substance: PAZOPANIB
     Indication: IMMUNOSUPPRESSANT DRUG THERAPY

REACTIONS (10)
  - Fatigue [Unknown]
  - Vomiting [Unknown]
  - Abdominal distension [Unknown]
  - Metastasis [Unknown]
  - Subileus [Unknown]
  - Abdominal pain [Unknown]
  - Systemic inflammatory response syndrome [Unknown]
  - Ovarian neoplasm [Unknown]
  - Drug interaction [Not Recovered/Not Resolved]
  - Nausea [Unknown]

NARRATIVE: CASE EVENT DATE: 201806
